FAERS Safety Report 14920288 (Version 1)
Quarter: 2018Q2

REPORT INFORMATION
  Report Type: Spontaneous
  Country: US (occurrence: US)
  Receive Date: 20180521
  Receipt Date: 20180521
  Transmission Date: 20180711
  Serious: Yes (Hospitalization)
  Sender: FDA-Public Use
  Company Number: US-VERTEX PHARMACEUTICALS-2018-003260

PATIENT
  Age: 14 Year
  Sex: Female

DRUGS (7)
  1. HUMULIN NOS [Concomitant]
     Active Substance: INSULIN HUMAN
  2. ALBUTEROL                          /00139501/ [Concomitant]
     Active Substance: ALBUTEROL
  3. HYPERSAL [Concomitant]
  4. COMPLETE MULTI VIT [Concomitant]
     Active Substance: VITAMINS
  5. PULMOZYME [Concomitant]
     Active Substance: DORNASE ALFA
  6. ORKAMBI [Suspect]
     Active Substance: IVACAFTOR\LUMACAFTOR
     Indication: CYSTIC FIBROSIS
     Dosage: 2 DOSAGE FORM (200/125 MG EACH), BID WITH FAT CONTAINING FOOD
     Route: 048
  7. NEXIUM [Concomitant]
     Active Substance: ESOMEPRAZOLE MAGNESIUM

REACTIONS (1)
  - Infective pulmonary exacerbation of cystic fibrosis [Not Recovered/Not Resolved]

NARRATIVE: CASE EVENT DATE: 20180508
